FAERS Safety Report 25804427 (Version 1)
Quarter: 2025Q3

REPORT INFORMATION
  Report Type: Spontaneous
  Country: EU (occurrence: EU)
  Receive Date: 20250915
  Receipt Date: 20250915
  Transmission Date: 20251020
  Serious: Yes (Other)
  Sender: MERCK SHARP & DOHME LLC
  Company Number: None

PATIENT
  Age: 1 Year
  Sex: Male

DRUGS (2)
  1. M-M-RVAXPRO [Suspect]
     Active Substance: MEASLES VIRUS STRAIN ENDERS^ ATTENUATED EDMONSTON LIVE ANTIGEN\MUMPS VIRUS STRAIN B LEVEL JERYL LYNN
     Indication: Immunisation
     Dates: start: 20250529, end: 20250529
  2. STERILE DILUENT (WATER) [Suspect]
     Active Substance: WATER

REACTIONS (4)
  - Crying [Unknown]
  - Hypertransaminasaemia [Unknown]
  - Blood creatine phosphokinase increased [Unknown]
  - Rash rubelliform [Unknown]

NARRATIVE: CASE EVENT DATE: 20250608
